FAERS Safety Report 7864581-8 (Version None)
Quarter: 2011Q4

REPORT INFORMATION
  Report Type: 
  Country: None (occurrence: None)
  Receive Date: 20111028
  Receipt Date: 20111019
  Transmission Date: 20120403
  Serious: Yes (Other)
  Sender: FDA-Public Use
  Company Number: US-JNJFOC-20111008920

PATIENT
  Sex: Female
  Weight: 78.02 kg

DRUGS (1)
  1. REMICADE [Suspect]
     Indication: RHEUMATOID ARTHRITIS
     Route: 042
     Dates: start: 20091102

REACTIONS (2)
  - TYPE 2 DIABETES MELLITUS [None]
  - FOOD POISONING [None]
